FAERS Safety Report 13590445 (Version 1)
Quarter: 2017Q2

REPORT INFORMATION
  Report Type: Report from Study
  Country: JP (occurrence: JP)
  Receive Date: 20170529
  Receipt Date: 20170529
  Transmission Date: 20170830
  Serious: Yes (Other)
  Sender: FDA-Public Use
  Company Number: JP-002147023-PHHY2012JP008096

PATIENT
  Age: 63 Year
  Sex: Male
  Weight: 62 kg

DRUGS (8)
  1. RASILEZ [Suspect]
     Active Substance: ALISKIREN
     Indication: HYPERTENSION
     Dosage: 150 MG, QD
     Route: 048
     Dates: start: 20101025, end: 20110818
  2. AMARYL [Concomitant]
     Active Substance: GLIMEPIRIDE
     Indication: PRODUCT USED FOR UNKNOWN INDICATION
     Dosage: 1 MG, UNK
     Route: 048
     Dates: start: 20100120
  3. AMARYL [Concomitant]
     Active Substance: GLIMEPIRIDE
     Dosage: 0.5 MG, UNK
     Route: 048
     Dates: end: 20110408
  4. SITAGLIPTIN PHOSPHATE [Concomitant]
     Active Substance: SITAGLIPTIN PHOSPHATE
     Indication: PRODUCT USED FOR UNKNOWN INDICATION
     Dosage: 50 MG, UNK
     Route: 048
     Dates: start: 20110726
  5. TAKEPRON [Concomitant]
     Active Substance: LANSOPRAZOLE
     Indication: PRODUCT USED FOR UNKNOWN INDICATION
     Dosage: 15 MG, UNK
     Route: 048
     Dates: start: 20100120
  6. BLOPRESS [Concomitant]
     Active Substance: CANDESARTAN CILEXETIL
     Indication: HYPERTENSION
     Dosage: 2 MG, UNK
     Route: 048
     Dates: start: 20110819, end: 20111119
  7. ACTOS [Concomitant]
     Active Substance: PIOGLITAZONE HYDROCHLORIDE
     Indication: PRODUCT USED FOR UNKNOWN INDICATION
     Dosage: 15 MG, UNK
     Route: 048
     Dates: start: 20100120
  8. ACTOS [Concomitant]
     Active Substance: PIOGLITAZONE HYDROCHLORIDE
     Dosage: 30 MG, UNK
     Route: 048
     Dates: end: 20110203

REACTIONS (1)
  - Blood pressure diastolic decreased [Recovered/Resolved]

NARRATIVE: CASE EVENT DATE: 20110620
